FAERS Safety Report 15155152 (Version 3)
Quarter: 2018Q3

REPORT INFORMATION
  Report Type: Report from Study
  Country: BR (occurrence: BR)
  Receive Date: 20180717
  Receipt Date: 20180906
  Transmission Date: 20181010
  Serious: Yes (Other)
  Sender: FDA-Public Use
  Company Number: BR-SAKK-2018SA164888AA

PATIENT
  Age: 66 Year
  Sex: Male
  Weight: 120 kg

DRUGS (5)
  1. AGALSIDASE BETA [Suspect]
     Active Substance: AGALSIDASE BETA
     Indication: FABRY^S DISEASE
     Dosage: 2 AND 3 VIALS, QOW
     Route: 041
     Dates: start: 20170803
  2. DOLANTINA [Concomitant]
     Active Substance: MEPERIDINE HYDROCHLORIDE
     Dosage: UNK UNK, UNK
     Route: 065
  3. AGALSIDASE BETA [Suspect]
     Active Substance: AGALSIDASE BETA
     Dosage: 2 AND 3 VIALS, QOW
     Route: 041
  4. AGALSIDASE BETA [Suspect]
     Active Substance: AGALSIDASE BETA
     Dosage: 2 AND 3 VIALS, QOW
     Route: 041
     Dates: start: 20180815
  5. BENZETACIL [BENZATHINE BENZYLPENICILLIN] [Concomitant]
     Dosage: UNK UNK, UNK
     Route: 065

REACTIONS (11)
  - Hypersensitivity [Recovered/Resolved]
  - Feeling cold [Recovered/Resolved]
  - Tremor [Recovered/Resolved]
  - Skin lesion [Not Recovered/Not Resolved]
  - Blood pressure increased [Recovering/Resolving]
  - Therapy cessation [Unknown]
  - Hypothermia [Recovering/Resolving]
  - Nervousness [Recovered/Resolved]
  - Bronchitis [Recovering/Resolving]
  - Nasopharyngitis [Not Recovered/Not Resolved]
  - Rash erythematous [Not Recovered/Not Resolved]

NARRATIVE: CASE EVENT DATE: 20180616
